FAERS Safety Report 20486601 (Version 4)
Quarter: 2025Q1

REPORT INFORMATION
  Report Type: Report from Study
  Country: US (occurrence: US)
  Receive Date: 20220217
  Receipt Date: 20250228
  Transmission Date: 20250409
  Serious: Yes (Other)
  Sender: TAKEDA
  Company Number: US-TAKEDA-2022TUS008416

PATIENT
  Sex: Female
  Weight: 68 kg

DRUGS (7)
  1. PONATINIB [Suspect]
     Active Substance: PONATINIB
     Indication: Chronic myeloid leukaemia
  2. PONATINIB [Suspect]
     Active Substance: PONATINIB
     Dosage: 45 MILLIGRAM, QD
     Dates: start: 201910
  3. PONATINIB [Suspect]
     Active Substance: PONATINIB
     Dosage: 45 MILLIGRAM, QD
  4. PONATINIB [Suspect]
     Active Substance: PONATINIB
     Dosage: 45 MILLIGRAM, QD
  5. CARVEDILOL [Concomitant]
     Active Substance: CARVEDILOL
  6. SPIRONOLACTONE [Concomitant]
     Active Substance: SPIRONOLACTONE
  7. FLUCONAZOLE [Concomitant]
     Active Substance: FLUCONAZOLE

REACTIONS (4)
  - Chronic myeloid leukaemia [Unknown]
  - Product dose omission issue [Unknown]
  - Product use issue [Unknown]
  - Blood pressure increased [Unknown]
